FAERS Safety Report 20133326 (Version 2)
Quarter: 2022Q1

REPORT INFORMATION
  Report Type: Report from Study
  Country: US (occurrence: US)
  Receive Date: 20211201
  Receipt Date: 20220207
  Transmission Date: 20220424
  Serious: Yes (Death, Other)
  Sender: FDA-Public Use
  Company Number: US-ACADIA PHARMACEUTICALS INC.-ACA-2021-PIM-003944

PATIENT
  Age: 64 Year
  Sex: Female

DRUGS (18)
  1. NUPLAZID [Suspect]
     Active Substance: PIMAVANSERIN TARTRATE
     Indication: Parkinson^s disease
     Dosage: 34 MILLIGRAM, QD
     Route: 048
  2. QUETIAPINE [Suspect]
     Active Substance: QUETIAPINE
  3. SINEMET [Concomitant]
     Active Substance: CARBIDOPA\LEVODOPA
     Dosage: 2 TABLETS 4 TIMES A DAY
  4. SINEMET [Concomitant]
     Active Substance: CARBIDOPA\LEVODOPA
     Dosage: 1.5 TABLETS EVERY 3 HOURS; CONTROLLED RELEASE
  5. PRAMIPEXOLE [Concomitant]
     Active Substance: PRAMIPEXOLE
  6. DUOPA [Concomitant]
     Active Substance: CARBIDOPA\LEVODOPA
  7. CYMBALTA [Concomitant]
     Active Substance: DULOXETINE HYDROCHLORIDE
  8. ARMODAFINIL [Concomitant]
     Active Substance: ARMODAFINIL
  9. NAPROXEN [Concomitant]
     Active Substance: NAPROXEN
  10. AMANTADINE [Concomitant]
     Active Substance: AMANTADINE
  11. VITAMIN B [Concomitant]
     Active Substance: VITAMIN B
  12. KRILL OIL [Concomitant]
     Active Substance: DIETARY SUPPLEMENT\KRILL OIL
  13. MAGNESIUM [Concomitant]
     Active Substance: MAGNESIUM
  14. PROBIOTICS NOS [Concomitant]
     Active Substance: PROBIOTICS NOS
  15. MELATONIN [Concomitant]
     Active Substance: MELATONIN
  16. LORATADINE [Concomitant]
     Active Substance: LORATADINE
  17. CYCLOBENZAPRINE [Concomitant]
     Active Substance: CYCLOBENZAPRINE
  18. DONEPEZIL [Concomitant]
     Active Substance: DONEPEZIL

REACTIONS (10)
  - Death [Fatal]
  - Anxiety [Unknown]
  - Fine motor skill dysfunction [Unknown]
  - Asthenia [Unknown]
  - Pollakiuria [Unknown]
  - Akinesia [Unknown]
  - Condition aggravated [Unknown]
  - Therapeutic response shortened [Unknown]
  - Dyspnoea [Unknown]
  - Somnolence [Unknown]

NARRATIVE: CASE EVENT DATE: 20220120
